FAERS Safety Report 5130572-3 (Version None)
Quarter: 2006Q4

REPORT INFORMATION
  Report Type: 
  Country: None (occurrence: None)
  Receive Date: 20061013
  Receipt Date: 20060926
  Transmission Date: 20070319
  Serious: Yes (Hospitalization)
  Sender: FDA-Public Use
  Company Number: USA030125689

PATIENT
  Age: 48 Year
  Sex: Female
  Weight: 44.5 kg

DRUGS (6)
  1. FORTEO [Suspect]
     Indication: OSTEOPOROSIS
     Dosage: 20 UG, DAILY (1/D), SUBCUTANEOUS
     Route: 058
     Dates: start: 20030106, end: 20030112
  2. BENADRYL [Concomitant]
  3. ASPIRIN [Concomitant]
  4. LIBRIUM [Concomitant]
  5. ROXICODONE [Concomitant]
  6. FORTEO [Concomitant]

REACTIONS (16)
  - ACCIDENTAL NEEDLE STICK [None]
  - BACK PAIN [None]
  - CONVULSION [None]
  - DRY MOUTH [None]
  - EYE IRRITATION [None]
  - FALL [None]
  - GLOSSODYNIA [None]
  - HYPERCALCAEMIA [None]
  - HYPOAESTHESIA [None]
  - PHARMACEUTICAL PRODUCT COMPLAINT [None]
  - SCRATCH [None]
  - SWOLLEN TONGUE [None]
  - TETANY [None]
  - TONGUE DISORDER [None]
  - TREMOR [None]
  - VOMITING [None]
